FAERS Safety Report 5801378-4 (Version None)
Quarter: 2008Q3

REPORT INFORMATION
  Report Type: 
  Country: None (occurrence: None)
  Receive Date: 20080703
  Receipt Date: 20080703
  Transmission Date: 20090109
  Serious: Yes (Other)
  Sender: FDA-Public Use
  Company Number: None

PATIENT
  Sex: Male

DRUGS (1)
  1. BUDEPRION XL 150MG [Suspect]
     Indication: MAJOR DEPRESSION
     Dosage: ONE PO QAM
     Route: 048
     Dates: start: 20070505, end: 20080505

REACTIONS (2)
  - MOOD ALTERED [None]
  - THERAPEUTIC RESPONSE UNEXPECTED WITH DRUG SUBSTITUTION [None]
